FAERS Safety Report 8551172 (Version 5)
Quarter: 2013Q2

REPORT INFORMATION
  Report Type: Spontaneous
  Country: US (occurrence: US)
  Receive Date: 20120508
  Receipt Date: 20130502
  Transmission Date: 20140414
  Serious: Yes (Hospitalization, Congenital Anomaly)
  Sender: FDA-Public Use
  Company Number: US-JNJFOC-20111104298

PATIENT
  Age: 0 Year
  Sex: Female
  Weight: 2.72 kg

DRUGS (22)
  1. TOPAMAX [Suspect]
     Indication: FOETAL EXPOSURE DURING PREGNANCY
     Route: 064
     Dates: start: 200309, end: 20100521
  2. MIDRIN [Suspect]
     Indication: FOETAL EXPOSURE DURING PREGNANCY
     Route: 064
  3. BICITRA [Concomitant]
     Indication: FOETAL EXPOSURE DURING PREGNANCY
     Route: 064
  4. TYLENOL [Concomitant]
     Indication: FOETAL EXPOSURE DURING PREGNANCY
     Route: 064
  5. Z-PAK [Concomitant]
     Indication: FOETAL EXPOSURE DURING PREGNANCY
     Route: 064
  6. GUAIFENESIN [Concomitant]
     Indication: FOETAL EXPOSURE DURING PREGNANCY
     Route: 064
  7. PEPCID [Concomitant]
     Indication: FOETAL EXPOSURE DURING PREGNANCY
     Route: 064
  8. REGLAN [Concomitant]
     Indication: FOETAL EXPOSURE DURING PREGNANCY
     Route: 064
  9. VITAMIN K [Concomitant]
     Indication: FOETAL EXPOSURE DURING PREGNANCY
     Route: 064
  10. AMOXIL [Concomitant]
     Indication: FOETAL EXPOSURE DURING PREGNANCY
     Route: 064
  11. PRIMACARE [Concomitant]
     Indication: FOETAL EXPOSURE DURING PREGNANCY
     Route: 064
  12. ANCEF [Concomitant]
     Indication: FOETAL EXPOSURE DURING PREGNANCY
     Route: 064
  13. PPI [Concomitant]
     Indication: FOETAL EXPOSURE DURING PREGNANCY
     Route: 064
  14. CIPROFLOXACIN [Concomitant]
     Indication: FOETAL EXPOSURE DURING PREGNANCY
     Route: 064
  15. PHENERGAN [Concomitant]
     Indication: FOETAL EXPOSURE DURING PREGNANCY
     Route: 064
  16. ATIVAN [Concomitant]
     Indication: FOETAL EXPOSURE DURING PREGNANCY
     Route: 064
  17. CEFOTAXIME [Concomitant]
     Indication: FOETAL EXPOSURE DURING PREGNANCY
     Route: 064
  18. AUGMENTIN [Concomitant]
     Indication: FOETAL EXPOSURE DURING PREGNANCY
     Route: 064
  19. ZANTAC [Concomitant]
     Indication: FOETAL EXPOSURE DURING PREGNANCY
     Route: 064
  20. FOLIC ACID [Concomitant]
     Indication: FOETAL EXPOSURE DURING PREGNANCY
     Route: 064
  21. AMPICILLIN [Concomitant]
     Indication: FOETAL EXPOSURE DURING PREGNANCY
     Route: 064
  22. CALCIUM [Concomitant]
     Indication: FOETAL EXPOSURE DURING PREGNANCY
     Route: 064

REACTIONS (3)
  - Cleft palate [Recovered/Resolved]
  - Cleft lip [Recovered/Resolved]
  - Tachycardia foetal [Unknown]
